FAERS Safety Report 17563053 (Version 9)
Quarter: 2021Q1

REPORT INFORMATION
  Report Type: Report from Study
  Country: US (occurrence: US)
  Receive Date: 20200319
  Receipt Date: 20210312
  Transmission Date: 20210419
  Serious: Yes (Hospitalization)
  Sender: FDA-Public Use
  Company Number: NVSC2020US078066

PATIENT
  Age: 71 Year
  Sex: Male

DRUGS (3)
  1. ENTRESTO [Suspect]
     Active Substance: SACUBITRIL\VALSARTAN
     Indication: CARDIAC FAILURE
     Dosage: 50 MG (24/26 MG), BID
     Route: 048
     Dates: start: 202001
  2. ENTRESTO [Suspect]
     Active Substance: SACUBITRIL\VALSARTAN
     Dosage: UNK
     Route: 065
  3. ENTRESTO [Suspect]
     Active Substance: SACUBITRIL\VALSARTAN
     Dosage: 100 MGC(49/51 MG), BID
     Route: 048

REACTIONS (15)
  - Arthralgia [Unknown]
  - Muscular weakness [Unknown]
  - Fatigue [Recovering/Resolving]
  - Cough [Unknown]
  - Hypoaesthesia [Unknown]
  - Abdominal pain upper [Unknown]
  - Product dose omission issue [Unknown]
  - Nausea [Unknown]
  - Carpal tunnel syndrome [Unknown]
  - Pain in extremity [Unknown]
  - Memory impairment [Unknown]
  - Intestinal obstruction [Unknown]
  - Vomiting [Unknown]
  - Dyspnoea [Recovering/Resolving]
  - Oropharyngeal discomfort [Unknown]

NARRATIVE: CASE EVENT DATE: 20200303
